FAERS Safety Report 12606564 (Version 1)
Quarter: 2016Q3

REPORT INFORMATION
  Report Type: Spontaneous
  Country: US (occurrence: None)
  Receive Date: 20160728
  Receipt Date: 20160728
  Transmission Date: 20161109
  Serious: Yes (Other)
  Sender: FDA-Public Use
  Company Number: None

PATIENT
  Age: 56 Year
  Sex: Female
  Weight: 99.79 kg

DRUGS (12)
  1. RECLAST [Suspect]
     Active Substance: ZOLEDRONIC ACID
     Indication: OSTEOPOROSIS
     Dosage: 1 INJECTION ONE TIME INTIO A VEIN
     Route: 042
     Dates: start: 20160725, end: 20160725
  2. HYDROCLORATHIDE [Concomitant]
  3. DEXILANT [Concomitant]
     Active Substance: DEXLANSOPRAZOLE
  4. LOSARTAN. [Concomitant]
     Active Substance: LOSARTAN
  5. BIOTENE NOS [Concomitant]
     Active Substance: CETYLPYRIDINIUM CHLORIDE OR SODIUM FLUORIDE OR SODIUM MONOFLUOROPHOSPHATE OR GLUCOSE OXIDASE\LACTOFERRIN\LACTOPEROXIDASE BOVINE\LYSOZYME
  6. CYCLOBENZAPRINE [Concomitant]
     Active Substance: CYCLOBENZAPRINE
  7. PREMARIN [Concomitant]
     Active Substance: ESTROGENS, CONJUGATED
  8. POTASSIUM [Concomitant]
     Active Substance: POTASSIUM
  9. PRAVASTATIN. [Concomitant]
     Active Substance: PRAVASTATIN
  10. ACTRAM [Concomitant]
  11. BUPROPION XL [Concomitant]
     Active Substance: BUPROPION
  12. MULTIVITAMIN [Concomitant]
     Active Substance: VITAMINS

REACTIONS (6)
  - Therapy non-responder [None]
  - Blood pressure increased [None]
  - Movement disorder [None]
  - Pain [None]
  - Vomiting [None]
  - Abasia [None]

NARRATIVE: CASE EVENT DATE: 20160725
